FAERS Safety Report 18073489 (Version 1)
Quarter: 2020Q3

REPORT INFORMATION
  Report Type: Spontaneous
  Country: LB (occurrence: LB)
  Receive Date: 20200727
  Receipt Date: 20200727
  Transmission Date: 20201103
  Serious: Yes (Death, Other)
  Sender: FDA-Public Use
  Company Number: LB-PFIZER INC-2020280275

PATIENT
  Age: 66 Year
  Sex: Female

DRUGS (6)
  1. IDARUBICIN HCL [Suspect]
     Active Substance: IDARUBICIN HYDROCHLORIDE
     Indication: ACUTE MYELOID LEUKAEMIA
     Dosage: 12 MG/M2, CYCLIC (FOR THREE DAYS)
  2. G?CSF [Suspect]
     Active Substance: GRANULOCYTE COLONY-STIMULATING FACTOR NOS
     Indication: ACUTE MYELOID LEUKAEMIA
     Dosage: UNK (FLAG?IDA REGIMEN) (RE?INDUCTION THERAPY)
  3. CYTARABINE. [Suspect]
     Active Substance: CYTARABINE
     Dosage: UNK (FLAG?IDA REGIMEN) (RE?INDUCTION THERAPY)
  4. CYTARABINE. [Suspect]
     Active Substance: CYTARABINE
     Indication: ACUTE MYELOID LEUKAEMIA
     Dosage: 150 MG/M2, CYCLIC (FOR SEVEN DAYS) (INDUCTION CHEMOTHERAPY)
  5. IDARUBICIN HCL [Suspect]
     Active Substance: IDARUBICIN HYDROCHLORIDE
     Dosage: UNK (FLAG?IDA REGIMEN) (RE?INDUCTION THERAPY)
  6. FLUDARABINE [Suspect]
     Active Substance: FLUDARABINE PHOSPHATE
     Indication: ACUTE MYELOID LEUKAEMIA
     Dosage: UNK (FLAG?IDA REGIMEN) (RE?INDUCTION THERAPY)

REACTIONS (5)
  - Acute respiratory distress syndrome [Fatal]
  - Colitis [Unknown]
  - Pulmonary haemorrhage [Fatal]
  - Neutropenia [Fatal]
  - Febrile neutropenia [Unknown]
